FAERS Safety Report 5075697-6 (Version None)
Quarter: 2006Q3

REPORT INFORMATION
  Report Type: 
  Country: None (occurrence: None)
  Receive Date: 20060809
  Receipt Date: 20060614
  Transmission Date: 20061208
  Serious: Yes (Hospitalization)
  Sender: FDA-Public Use
  Company Number: FR-AVENTIS-200612159FR

PATIENT
  Age: 80 Year
  Sex: Male

DRUGS (5)
  1. CLAFORAN [Suspect]
     Indication: INFECTION
     Route: 042
     Dates: start: 20051012, end: 20051109
  2. RIFADIN [Suspect]
     Indication: INFECTION
     Route: 042
     Dates: start: 20051025, end: 20051109
  3. VISIPAQUE [Suspect]
     Route: 042
     Dates: start: 20051102, end: 20051102
  4. SILOMAT [Concomitant]
     Route: 048
     Dates: start: 20051107, end: 20051109
  5. VANCOMYCIN [Concomitant]
     Indication: INFECTION
     Route: 042
     Dates: start: 20051025, end: 20051109

REACTIONS (8)
  - ANAEMIA [None]
  - C-REACTIVE PROTEIN INCREASED [None]
  - DERMATITIS EXFOLIATIVE [None]
  - DRUG RASH WITH EOSINOPHILIA AND SYSTEMIC SYMPTOMS [None]
  - EOSINOPHILIA [None]
  - HYPERSENSITIVITY [None]
  - PETECHIAE [None]
  - THROMBOCYTOPENIA [None]
